FAERS Safety Report 4967191-5 (Version None)
Quarter: 2006Q2

REPORT INFORMATION
  Report Type: 
  Country: None (occurrence: None)
  Receive Date: 20060410
  Receipt Date: 20060327
  Transmission Date: 20061013
  Serious: Yes (Death, Disabling, Other)
  Sender: FDA-Public Use
  Company Number: 2006AC00554

PATIENT
  Age: 76 Year
  Sex: Male

DRUGS (3)
  1. ZOLADEX [Suspect]
     Indication: PROSTATIC SPECIFIC ANTIGEN INCREASED
     Route: 058
     Dates: start: 19970301, end: 19970301
  2. ZOLADEX [Suspect]
     Route: 058
     Dates: start: 19970601, end: 19970601
  3. ZOLADEX [Suspect]
     Route: 058
     Dates: start: 19970801, end: 19970801

REACTIONS (16)
  - DYSTONIA [None]
  - FEELING ABNORMAL [None]
  - JOINT STIFFNESS [None]
  - METASTASES TO CENTRAL NERVOUS SYSTEM [None]
  - MOTOR DYSFUNCTION [None]
  - MUSCLE ATROPHY [None]
  - MUSCLE SPASMS [None]
  - MUSCULAR WEAKNESS [None]
  - NEURALGIA [None]
  - NEURODEGENERATIVE DISORDER [None]
  - OSTEOCHONDROSIS [None]
  - PAIN [None]
  - PARAESTHESIA [None]
  - PARKINSONISM [None]
  - PNEUMONIA [None]
  - SYNCOPE [None]
